FAERS Safety Report 9386993 (Version 1)
Quarter: 2013Q3

REPORT INFORMATION
  Report Type: Spontaneous
  Country: GB (occurrence: None)
  Receive Date: 20130702
  Receipt Date: 20130702
  Transmission Date: 20140515
  Serious: Yes (Other)
  Sender: FDA-Public Use
  Company Number: AUR-APL-2013-05300

PATIENT
  Age: 36 Year
  Sex: Female

DRUGS (1)
  1. RANITIDINE [Suspect]
     Indication: DYSPEPSIA
     Route: 048
     Dates: start: 201109, end: 201109

REACTIONS (8)
  - Malaise [None]
  - Erythema [None]
  - Oedema [None]
  - Rash [None]
  - Dizziness [None]
  - Vomiting [None]
  - Skin test positive [None]
  - Drug hypersensitivity [None]
